FAERS Safety Report 9253059 (Version 1)
Quarter: 2013Q2

REPORT INFORMATION
  Report Type: Spontaneous
  Country: US (occurrence: US)
  Receive Date: 20130424
  Receipt Date: 20130424
  Transmission Date: 20140414
  Serious: Yes (Other)
  Sender: FDA-Public Use
  Company Number: CHPA2013US006868

PATIENT
  Age: 86 Year
  Sex: Male

DRUGS (3)
  1. GAS-X EXTRA STRENGTH SOFTGELS [Suspect]
     Indication: FLATULENCE
     Dosage: 125 MG, UNK
     Route: 048
  2. GAS-X EXTRA STRENGTH SOFTGELS [Suspect]
     Indication: ABDOMINAL DISCOMFORT
  3. GAS-X EXTRA STRENGTH SOFTGELS [Suspect]
     Indication: PROPHYLAXIS

REACTIONS (2)
  - Hernia [Recovered/Resolved]
  - Off label use [Unknown]
